FAERS Safety Report 12622748 (Version 2)
Quarter: 2016Q4

REPORT INFORMATION
  Report Type: Report from Study
  Country: US (occurrence: US)
  Receive Date: 20160804
  Receipt Date: 20161005
  Transmission Date: 20170207
  Serious: Yes (Hospitalization)
  Sender: FDA-Public Use
  Company Number: US-JNJFOC-20160717978

PATIENT
  Age: 83 Year
  Sex: Female
  Weight: 63 kg

DRUGS (11)
  1. IMBRUVICA [Suspect]
     Active Substance: IBRUTINIB
     Indication: NON-HODGKIN^S LYMPHOMA
     Route: 048
     Dates: start: 20160419, end: 201607
  2. CENTRUM SILVER WITH LYCOPENE [Concomitant]
  3. ASPIRIN. [Concomitant]
     Active Substance: ASPIRIN
  4. ZOFRAN [Concomitant]
     Active Substance: ONDANSETRON HYDROCHLORIDE
  5. BENADRYL [Concomitant]
     Active Substance: DIPHENHYDRAMINE HYDROCHLORIDE
     Dosage: 25 MG EVERY 6 HOURS
  6. XANAX [Concomitant]
     Active Substance: ALPRAZOLAM
     Route: 048
  7. ZOFRAN [Concomitant]
     Active Substance: ONDANSETRON HYDROCHLORIDE
     Dosage: EVERY 8 HOIURS AS NEEDED
  8. ALDACTONE [Concomitant]
     Active Substance: SPIRONOLACTONE
     Route: 048
  9. KRILL OIL [Concomitant]
     Active Substance: DIETARY SUPPLEMENT
     Route: 048
  10. COZAAR [Concomitant]
     Active Substance: LOSARTAN POTASSIUM
     Route: 048
  11. COREG [Concomitant]
     Active Substance: CARVEDILOL

REACTIONS (10)
  - Off label use [Recovered/Resolved]
  - Compression fracture [Unknown]
  - Myalgia [Not Recovered/Not Resolved]
  - Hypovolaemia [Unknown]
  - Fall [Unknown]
  - Muscle spasms [Not Recovered/Not Resolved]
  - Blood chloride decreased [Unknown]
  - Product use issue [Recovered/Resolved]
  - Hyponatraemia [Recovering/Resolving]
  - Hypophagia [Unknown]

NARRATIVE: CASE EVENT DATE: 2016
